FAERS Safety Report 23966063 (Version 1)
Quarter: 2024Q2

REPORT INFORMATION
  Report Type: Report from Study
  Country: US (occurrence: US)
  Receive Date: 20240612
  Receipt Date: 20240612
  Transmission Date: 20240716
  Serious: Yes (Hospitalization, Other)
  Sender: FDA-Public Use
  Company Number: US-ABBVIE-5792038

PATIENT
  Sex: Female
  Weight: 64 kg

DRUGS (6)
  1. HUMIRA [Suspect]
     Active Substance: ADALIMUMAB
     Indication: Crohn^s disease
     Dosage: FORM STRENGTH: 40 MILLIGRAM
     Route: 058
     Dates: start: 20240308, end: 20240517
  2. LEXAPRO [Concomitant]
     Active Substance: ESCITALOPRAM OXALATE
     Indication: Anxiety
  3. PEPCID [Concomitant]
     Active Substance: FAMOTIDINE
     Indication: Chest pain
  4. LAMOTRIGINE [Concomitant]
     Active Substance: LAMOTRIGINE
     Indication: Affective disorder
  5. PREDNISONE [Concomitant]
     Active Substance: PREDNISONE
     Indication: Serum sickness
     Dosage: FORM STRENGTH: 60 MILLIGRAM, DURATION TEXT: 4 DAYS
     Route: 048
     Dates: start: 20240519, end: 20240522
  6. PREDNISONE [Concomitant]
     Active Substance: PREDNISONE
     Indication: Serum sickness
     Dosage: FORM STRENGTH: 20 MILLIGRAM,
     Route: 048
     Dates: start: 20240523, end: 20240601

REACTIONS (16)
  - Serum sickness [Recovering/Resolving]
  - Retinal oedema [Unknown]
  - Chest pain [Unknown]
  - Pruritus [Not Recovered/Not Resolved]
  - Joint stiffness [Recovering/Resolving]
  - Arthralgia [Recovering/Resolving]
  - White blood cell count increased [Unknown]
  - Dyspnoea [Recovering/Resolving]
  - Dyspepsia [Recovering/Resolving]
  - Erythema [Recovering/Resolving]
  - Vision blurred [Unknown]
  - Cough [Not Recovered/Not Resolved]
  - Pulmonary oedema [Unknown]
  - Rash [Unknown]
  - Crohn^s disease [Not Recovered/Not Resolved]
  - Nausea [Unknown]

NARRATIVE: CASE EVENT DATE: 20240101
